FAERS Safety Report 24329074 (Version 2)
Quarter: 2024Q4

REPORT INFORMATION
  Report Type: Spontaneous
  Country: JP (occurrence: JP)
  Receive Date: 20240917
  Receipt Date: 20241120
  Transmission Date: 20250115
  Serious: Yes (Hospitalization, Other)
  Sender: PURDUE
  Company Number: JP-MLMSERVICE-20240816-PI165537-00252-1

PATIENT
  Age: 65 Year
  Sex: Male

DRUGS (17)
  1. OXYCONTIN [Suspect]
     Active Substance: OXYCODONE HYDROCHLORIDE
     Indication: Cancer pain
     Dosage: 20 MILLIGRAM, DAILY
     Route: 048
  2. OXYCONTIN [Suspect]
     Active Substance: OXYCODONE HYDROCHLORIDE
     Indication: Condition aggravated
     Dosage: 30 MILLIGRAM, DAILY
     Route: 048
     Dates: start: 2023
  3. OXYCONTIN [Suspect]
     Active Substance: OXYCODONE HYDROCHLORIDE
     Dosage: 40 MILLIGRAM, DAILY
     Route: 048
     Dates: start: 2023
  4. OXYCONTIN [Suspect]
     Active Substance: OXYCODONE HYDROCHLORIDE
     Dosage: 60 MILLIGRAM, DAILY
     Route: 048
     Dates: start: 2023
  5. TRAMADOL [Suspect]
     Active Substance: TRAMADOL
     Indication: Cancer pain
     Dosage: 150 MILLIGRAM, DAILY
     Route: 065
  6. CLONAZEPAM [Suspect]
     Active Substance: CLONAZEPAM
     Indication: Bipolar disorder
     Dosage: 1 MILLIGRAM, DAILY
     Route: 065
  7. ESOMEPRAZOLE [Suspect]
     Active Substance: ESOMEPRAZOLE
     Indication: Gastric pH increased
     Dosage: 20 MILLIGRAM, DAILY
     Route: 065
  8. CARBIDOPA\LEVODOPA [Suspect]
     Active Substance: CARBIDOPA\LEVODOPA
     Indication: Parkinson^s disease
     Dosage: 200 MILLIGRAM, DAILY
     Route: 065
  9. NAPROXEN [Suspect]
     Active Substance: NAPROXEN
     Indication: Cancer pain
     Dosage: 300 MILLIGRAM, DAILY
     Route: 065
  10. LAMOTRIGINE [Suspect]
     Active Substance: LAMOTRIGINE
     Indication: Bipolar disorder
     Dosage: 50 MILLIGRAM, DAILY
     Route: 065
  11. CALCIUM SENNOSIDES [Suspect]
     Active Substance: SENNOSIDES
     Indication: Infrequent bowel movements
     Dosage: 24 MILLIGRAM, AS NECESSARY
     Route: 065
  12. BISACODYL [Suspect]
     Active Substance: BISACODYL
     Indication: Infrequent bowel movements
     Dosage: 10 MILLIGRAM,AS NECESSARY
     Route: 065
  13. SYMPROIC [Suspect]
     Active Substance: NALDEMEDINE
     Indication: Constipation
     Dosage: 0.2 MILLIGRAM, DAILY
     Route: 048
     Dates: start: 20230612, end: 20230720
  14. DEXAMETHASONE [Suspect]
     Active Substance: DEXAMETHASONE
     Indication: Antiemetic supportive care
     Dosage: UNK
     Route: 065
  15. CISPLATIN [Suspect]
     Active Substance: CISPLATIN
     Indication: Lip and/or oral cavity cancer stage IV
     Dosage: 80 MILLIGRAM, DAILY
     Route: 042
  16. PALONOSETRON HYDROCHLORIDE [Suspect]
     Active Substance: PALONOSETRON HYDROCHLORIDE
     Indication: Antiemetic supportive care
     Dosage: UNK
     Route: 065
  17. FOSNETUPITANT CHLORIDE HYDROCHLORIDE [Suspect]
     Active Substance: FOSNETUPITANT CHLORIDE HYDROCHLORIDE
     Indication: Antiemetic supportive care
     Dosage: UNK
     Route: 065

REACTIONS (12)
  - Constipation [Unknown]
  - Gastrointestinal perforation [Recovering/Resolving]
  - Diverticulitis [Recovered/Resolved]
  - Diverticular perforation [Recovered/Resolved]
  - Peritonitis [Recovered/Resolved]
  - Abdominal pain [Recovered/Resolved]
  - Mucosal inflammation [Unknown]
  - Constipation [Unknown]
  - Infrequent bowel movements [Unknown]
  - Pyrexia [Recovered/Resolved]
  - Abdominal distension [Recovered/Resolved]
  - Abdominal discomfort [Recovered/Resolved]

NARRATIVE: CASE EVENT DATE: 20230718
